FAERS Safety Report 15276792 (Version 4)
Quarter: 2019Q2

REPORT INFORMATION
  Report Type: Spontaneous
  Country: US (occurrence: US)
  Receive Date: 20180814
  Receipt Date: 20190523
  Transmission Date: 20190711
  Serious: Yes (Hospitalization, Other)
  Sender: FDA-Public Use
  Company Number: US-PFIZER INC-2018323388

PATIENT
  Sex: Female

DRUGS (2)
  1. TIKOSYN [Suspect]
     Active Substance: DOFETILIDE
     Indication: ATRIAL FIBRILLATION
     Dosage: 250 MG, TWICE A DAY
     Route: 048
  2. TIKOSYN [Suspect]
     Active Substance: DOFETILIDE
     Indication: CARDIAC DISORDER
     Dosage: 125 MG, 2X/DAY
     Dates: start: 2016

REACTIONS (7)
  - Weight decreased [Unknown]
  - Kidney infection [Recovered/Resolved]
  - Overdose [Unknown]
  - Urinary tract infection [Recovered/Resolved]
  - Gastric disorder [Recovered/Resolved]
  - Protein total increased [Recovered/Resolved]
  - Bone swelling [Recovered/Resolved]

NARRATIVE: CASE EVENT DATE: 2017
